FAERS Safety Report 6181116-9 (Version None)
Quarter: 2009Q2

REPORT INFORMATION
  Report Type: 
  Country: None (occurrence: None)
  Receive Date: 20090506
  Receipt Date: 20090424
  Transmission Date: 20091009
  Serious: Yes (Other)
  Sender: FDA-Public Use
  Company Number: PHHY2009BR16966

PATIENT
  Sex: Female

DRUGS (2)
  1. TEGRETOL [Suspect]
     Indication: EPILEPSY
     Dosage: 400 MG, TID
     Route: 048
  2. GARDENAL [Concomitant]
     Indication: EPILEPSY
     Dosage: 100 MG, QD
     Route: 048

REACTIONS (5)
  - CONVULSION [None]
  - HEAD INJURY [None]
  - PAIN [None]
  - PETIT MAL EPILEPSY [None]
  - TAENIASIS [None]
